FAERS Safety Report 8598004 (Version 3)
Quarter: 2012Q4

REPORT INFORMATION
  Report Type: 
  Country: DE (occurrence: DE)
  Receive Date: 20120605
  Receipt Date: 20121206
  Transmission Date: 20130627
  Serious: Yes (Other)
  Sender: FDA-Public Use
  Company Number: DE-UCBSA-058095

PATIENT
  Age: 17 Year
  Sex: Female
  Weight: 53 kg

DRUGS (6)
  1. KEPPRA [Suspect]
     Indication: EPILEPSY
     Dates: start: 20100828, end: 201009
  2. ACICLOVIR [Suspect]
     Indication: ENCEPHALITIS HERPES
     Dates: end: 2010
  3. FRISIUM [Concomitant]
     Indication: EPILEPSY
  4. FRISIUM [Concomitant]
     Indication: EPILEPSY
     Dosage: DOSE INCREASED
     Dates: start: 201009
  5. REMERGIL [Concomitant]
     Dosage: 15 MG NIGHTS AS NEEDED
  6. LAMICTAL [Concomitant]
     Dosage: 25 MG, DOSE INCREASED BY 25 MG EVERY 10 DAYS UNTILL 50-0-50MG, THEN INCREASE BY 50 MG EVERY 10 DAYS
     Dates: start: 20100910

REACTIONS (8)
  - Renal failure acute [Recovered/Resolved]
  - Partial seizures [Unknown]
  - Grand mal convulsion [Unknown]
  - Psychomotor retardation [Unknown]
  - Cognitive disorder [Unknown]
  - Aphasia [Unknown]
  - Tubulointerstitial nephritis [Unknown]
  - Blood creatinine increased [Recovered/Resolved]
